FAERS Safety Report 18687103 (Version 1)
Quarter: 2020Q4

REPORT INFORMATION
  Report Type: Spontaneous
  Country: US (occurrence: US)
  Receive Date: 20201231
  Receipt Date: 20201231
  Transmission Date: 20210114
  Serious: Yes (Other)
  Sender: FDA-Public Use
  Company Number: US-SUN PHARMACEUTICAL INDUSTRIES LTD-2020R1-273104

PATIENT
  Age: 90 Year
  Sex: Male

DRUGS (2)
  1. PIPERACILLIN/TAZOBACTAM [Suspect]
     Active Substance: PIPERACILLIN SODIUM\TAZOBACTAM SODIUM
     Indication: OSTEOMYELITIS
     Dosage: UNK
     Route: 065
  2. CEPHALEXIN. [Suspect]
     Active Substance: CEPHALEXIN
     Indication: OSTEOMYELITIS
     Dosage: UNK
     Route: 065

REACTIONS (4)
  - Lymphadenopathy [Unknown]
  - Transaminases increased [Unknown]
  - Stevens-Johnson syndrome [Recovered/Resolved]
  - Eosinophilia [Unknown]
